FAERS Safety Report 23821323 (Version 3)
Quarter: 2024Q2

REPORT INFORMATION
  Report Type: Spontaneous
  Country: US (occurrence: US)
  Receive Date: 20240506
  Receipt Date: 20240513
  Transmission Date: 20240715
  Serious: No
  Sender: FDA-Public Use
  Company Number: US-PFIZER INC-202400099868

PATIENT
  Age: 5 Year
  Sex: Male
  Weight: 24 kg

DRUGS (4)
  1. OXBRYTA [Suspect]
     Active Substance: VOXELOTOR
     Indication: Sickle cell disease
     Dosage: 900 MG, 1X/DAY
     Route: 048
     Dates: start: 20231212, end: 20240503
  2. HYDROXYUREA [Concomitant]
     Active Substance: HYDROXYUREA
     Indication: Sickle cell disease
     Dosage: 560 MG, DAILY
  3. FOLIC ACID [Concomitant]
     Active Substance: FOLIC ACID
     Indication: Sickle cell disease
     Dosage: 1 MG, DAILY
  4. HYCET [CETIRIZINE HYDROCHLORIDE] [Concomitant]
     Dosage: 5 M/S, DAILY

REACTIONS (1)
  - Rash [Recovered/Resolved]
